FAERS Safety Report 10087153 (Version 2)
Quarter: 2014Q3

REPORT INFORMATION
  Report Type: Spontaneous
  Country: KR (occurrence: KR)
  Receive Date: 20140418
  Receipt Date: 20140805
  Transmission Date: 20150326
  Serious: Yes (Other)
  Sender: FDA-Public Use
  Company Number: KR-NAPPMUNDI-GBR-2014-0017995

PATIENT
  Age: 79 Year
  Sex: Male

DRUGS (2)
  1. NORSPAN [Suspect]
     Active Substance: BUPRENORPHINE
     Indication: FRACTURE PAIN
     Dosage: 15 MCG, Q1H
     Route: 062
     Dates: start: 20140405, end: 20140407
  2. CELEBREX [Concomitant]
     Active Substance: CELECOXIB
     Indication: PAIN
     Dosage: UNK
     Dates: start: 20140405

REACTIONS (3)
  - Delirium [Unknown]
  - Memory impairment [Unknown]
  - Dementia [Unknown]

NARRATIVE: CASE EVENT DATE: 20140407
